FAERS Safety Report 5633012-0 (Version None)
Quarter: 2008Q1

REPORT INFORMATION
  Report Type: 
  Country: None (occurrence: None)
  Receive Date: 20080214
  Receipt Date: 20080206
  Transmission Date: 20080703
  Serious: Yes (Death)
  Sender: FDA-Public Use
  Company Number: E2020-02254-SPO-JP

PATIENT
  Age: 51 Year
  Sex: Female

DRUGS (3)
  1. ARICEPT [Suspect]
     Indication: DEMENTIA ALZHEIMER'S TYPE
     Dosage: ORAL
     Route: 048
     Dates: start: 20070101
  2. DORAL [Concomitant]
  3. TOLEDOMIN (MILNACIPRAN  HYDROCHLORIDE) [Concomitant]

REACTIONS (1)
  - RHABDOMYOLYSIS [None]
